FAERS Safety Report 14177823 (Version 2)
Quarter: 2018Q1

REPORT INFORMATION
  Report Type: Spontaneous
  Country: US (occurrence: US)
  Receive Date: 20171110
  Receipt Date: 20180118
  Transmission Date: 20180508
  Serious: Yes (Disabling, Other)
  Sender: FDA-Public Use
  Company Number: PHEH2017US035795

PATIENT
  Age: 27 Year
  Sex: Female
  Weight: 57 kg

DRUGS (1)
  1. GILENYA [Suspect]
     Active Substance: FINGOLIMOD HYDROCHLORIDE
     Indication: MULTIPLE SCLEROSIS RELAPSE
     Dosage: 0.5 MG, QD
     Route: 048
     Dates: start: 20111024, end: 20161113

REACTIONS (4)
  - Maternal exposure before pregnancy [Unknown]
  - Peroneal nerve palsy [Unknown]
  - Hemiparesis [Unknown]
  - Rebound effect [Recovered/Resolved with Sequelae]

NARRATIVE: CASE EVENT DATE: 20170113
